FAERS Safety Report 5570529-1 (Version None)
Quarter: 2007Q4

REPORT INFORMATION
  Report Type: 
  Country: None (occurrence: None)
  Receive Date: 20071221
  Receipt Date: 20071210
  Transmission Date: 20080405
  Serious: Yes (Other)
  Sender: FDA-Public Use
  Company Number: FR-BAYER-200717039GPV

PATIENT
  Age: 72 Year
  Sex: Male
  Weight: 72 kg

DRUGS (2)
  1. NEXAVAR [Suspect]
     Indication: HEPATIC NEOPLASM MALIGNANT
     Dosage: TOTAL DAILY DOSE: 400 MG
     Route: 048
     Dates: start: 20071012, end: 20071025
  2. NEXAVAR [Suspect]
     Dosage: TOTAL DAILY DOSE: 1600 MG
     Route: 048

REACTIONS (3)
  - DRUG ERUPTION [None]
  - DRUG INTOLERANCE [None]
  - EOSINOPHILIA [None]
